FAERS Safety Report 7787439-1 (Version None)
Quarter: 2011Q3

REPORT INFORMATION
  Report Type: 
  Country: None (occurrence: None)
  Receive Date: 20110929
  Receipt Date: 20110713
  Transmission Date: 20111222
  Serious: No
  Sender: FDA-Public Use
  Company Number: US-BAYER-2011-062420

PATIENT
  Age: 82 Year
  Sex: Female
  Weight: 73 kg

DRUGS (2)
  1. ALEVE (CAPLET) [Suspect]
     Dosage: 2 U, BID
     Route: 048
  2. HIGH BLOOD PRESSURE MEDICATION [Concomitant]
     Indication: HYPERTENSION

REACTIONS (1)
  - NO ADVERSE EVENT [None]
